FAERS Safety Report 25215881 (Version 1)
Quarter: 2025Q2

REPORT INFORMATION
  Report Type: Spontaneous
  Country: UA (occurrence: UA)
  Receive Date: 20250418
  Receipt Date: 20250418
  Transmission Date: 20250716
  Serious: Yes (Death)
  Sender: MYLAN
  Company Number: UA-MYLANLABS-2025M1033515

PATIENT
  Age: 58 Year
  Sex: Male

DRUGS (4)
  1. PRETOMANID [Suspect]
     Active Substance: PRETOMANID
     Indication: Tuberculosis
     Dosage: 0.2 GRAM, QD
     Dates: start: 20250225, end: 20250311
  2. BEDAQUILINE [Suspect]
     Active Substance: BEDAQUILINE
     Indication: Tuberculosis
     Dosage: 0.2 GRAM, 3XW
     Dates: start: 20250225, end: 20250311
  3. LINEZOLID [Concomitant]
     Active Substance: LINEZOLID
     Indication: Tuberculosis
     Dosage: 0.6 GRAM, QD
     Dates: start: 20250225, end: 20250311
  4. Floxsafe [Concomitant]
     Indication: Tuberculosis
     Dosage: 0.4 GRAM, QD
     Dates: start: 20250225, end: 20250311

REACTIONS (1)
  - Death [Fatal]

NARRATIVE: CASE EVENT DATE: 20250315
